FAERS Safety Report 20929602 (Version 1)
Quarter: 2022Q2

REPORT INFORMATION
  Report Type: Spontaneous
  Country: RU (occurrence: None)
  Receive Date: 20220608
  Receipt Date: 20220608
  Transmission Date: 20220721
  Serious: Yes (Other)
  Sender: FDA-Public Use
  Company Number: RU-ROCHE-3108748

PATIENT
  Age: 15 Year
  Sex: Male
  Weight: 26 kg

DRUGS (1)
  1. RISDIPLAM [Suspect]
     Active Substance: RISDIPLAM
     Indication: Spinal muscular atrophy
     Route: 065
     Dates: start: 202105

REACTIONS (3)
  - Gastrostomy [Unknown]
  - Scoliosis [Unknown]
  - Osteoporosis [Unknown]
